FAERS Safety Report 5528846-7 (Version None)
Quarter: 2007Q4

REPORT INFORMATION
  Report Type: 
  Country: None (occurrence: None)
  Receive Date: 20071129
  Receipt Date: 20071121
  Transmission Date: 20080405
  Serious: Yes (Hospitalization)
  Sender: FDA-Public Use
  Company Number: US-JNJFOC-20071108810

PATIENT
  Sex: Female
  Weight: 52.62 kg

DRUGS (2)
  1. TOPAMAX [Suspect]
     Indication: CONVULSION
     Route: 048
  2. FIORINOL [Concomitant]
     Indication: MIGRAINE

REACTIONS (4)
  - ABDOMINAL PAIN [None]
  - HEPATIC ENZYME INCREASED [None]
  - NAUSEA [None]
  - PANCREATIC ENZYMES INCREASED [None]
